FAERS Safety Report 5579350-1 (Version None)
Quarter: 2007Q4

REPORT INFORMATION
  Report Type: 
  Country: None (occurrence: None)
  Receive Date: 20071130
  Receipt Date: 20070708
  Transmission Date: 20080405
  Serious: No
  Sender: FDA-Public Use
  Company Number: US200707000238

PATIENT
  Age: 55 Year
  Sex: Female
  Weight: 67.6 kg

DRUGS (6)
  1. BYETTA [Suspect]
     Indication: TYPE 2 DIABETES MELLITUS
     Dosage: 5 UG, 2/D, 10 UG, 2/D SUBCUTANEOUS
     Route: 058
     Dates: start: 20061001, end: 20060101
  2. BYETTA [Suspect]
     Indication: TYPE 2 DIABETES MELLITUS
     Dosage: 5 UG, 2/D, 10 UG, 2/D SUBCUTANEOUS
     Route: 058
     Dates: start: 20060901, end: 20061001
  3. BYETTA [Suspect]
     Indication: TYPE 2 DIABETES MELLITUS
     Dosage: 5 UG, 2/D, 10 UG, 2/D SUBCUTANEOUS
     Route: 058
     Dates: start: 20060101, end: 20070501
  4. BYETTA [Suspect]
     Indication: TYPE 2 DIABETES MELLITUS
     Dosage: 5 UG, 2/D, 10 UG, 2/D SUBCUTANEOUS
     Route: 058
     Dates: start: 20070617
  5. GLIPIZIDE [Concomitant]
  6. ASPIRIN [Concomitant]

REACTIONS (11)
  - BLOOD GLUCOSE DECREASED [None]
  - BLOOD GLUCOSE INCREASED [None]
  - DECREASED APPETITE [None]
  - FATIGUE [None]
  - FEELING JITTERY [None]
  - HYPERHIDROSIS [None]
  - INJECTION SITE BRUISING [None]
  - INJECTION SITE PAIN [None]
  - NAUSEA [None]
  - PRESYNCOPE [None]
  - WEIGHT DECREASED [None]
